FAERS Safety Report 24045974 (Version 1)
Quarter: 2024Q3

REPORT INFORMATION
  Report Type: Spontaneous
  Country: US (occurrence: None)
  Receive Date: 20240703
  Receipt Date: 20240703
  Transmission Date: 20241017
  Serious: No
  Sender: ASTRAZENECA
  Company Number: 2024A139718

PATIENT
  Age: 68 Year
  Sex: Female

DRUGS (2)
  1. FASENRA [Suspect]
     Active Substance: BENRALIZUMAB
     Route: 058
  2. CORTICOTROPIN [Suspect]
     Active Substance: CORTICOTROPIN
     Indication: Benign familial haematuria
     Dosage: 80 UNITS 2 TIMES A WEEK
     Route: 058

REACTIONS (9)
  - Urinary tract infection [Unknown]
  - Somnolence [Unknown]
  - Blood pressure increased [Unknown]
  - Weight increased [Not Recovered/Not Resolved]
  - Euphoric mood [Unknown]
  - Psychomotor hyperactivity [Unknown]
  - Renal impairment [Unknown]
  - Headache [Unknown]
  - Headache [Unknown]
